FAERS Safety Report 7976804 (Version 14)
Quarter: 2012Q4

REPORT INFORMATION
  Report Type: 
  Country: US (occurrence: US)
  Receive Date: 20110607
  Receipt Date: 20121116
  Transmission Date: 20130627
  Serious: Yes (Hospitalization, Other)
  Sender: FDA-Public Use
  Company Number: US-ASTRAZENECA-2011SE32185

PATIENT
  Age: 50 Year
  Sex: Female
  Weight: 83.9 kg

DRUGS (38)
  1. NEXIUM [Suspect]
     Indication: GASTROOESOPHAGEAL REFLUX DISEASE
     Route: 048
     Dates: start: 20050117
  2. NEXIUM [Suspect]
     Indication: GASTROOESOPHAGEAL REFLUX DISEASE
     Route: 048
     Dates: start: 200601, end: 200601
  3. NEXIUM [Suspect]
     Indication: GASTROOESOPHAGEAL REFLUX DISEASE
     Route: 048
     Dates: start: 200602, end: 200602
  4. NEXIUM [Suspect]
     Indication: GASTROOESOPHAGEAL REFLUX DISEASE
     Route: 048
     Dates: start: 20060306
  5. NEXIUM [Suspect]
     Indication: GASTROOESOPHAGEAL REFLUX DISEASE
     Route: 048
     Dates: start: 200602, end: 201104
  6. NEXIUM [Suspect]
     Indication: GASTROOESOPHAGEAL REFLUX DISEASE
     Route: 048
     Dates: start: 20070725
  7. NEXIUM [Suspect]
     Indication: GASTROOESOPHAGEAL REFLUX DISEASE
     Route: 048
     Dates: start: 20110320
  8. ZANTAC OTC [Concomitant]
     Dosage: 75 MG TO 150 MG
  9. ZANTAC OTC [Concomitant]
     Route: 048
     Dates: start: 20120105
  10. ZANTAC OTC [Concomitant]
     Dates: start: 201203
  11. TAGAMET OTC [Concomitant]
  12. PEPCID OTC [Concomitant]
  13. VITAMINS SUPPLEMENTS [Concomitant]
  14. FIBER SUPPLEMENT [Concomitant]
  15. PREMARIN [Concomitant]
     Route: 048
     Dates: start: 200602, end: 200906
  16. IBUPROFEN [Concomitant]
     Indication: HEADACHE
     Dates: start: 20060227
  17. IBUPROFEN [Concomitant]
     Indication: HEADACHE
     Route: 048
     Dates: start: 20060306
  18. IBUPROFEN [Concomitant]
     Indication: HEADACHE
     Dosage: AS NEEDED
     Dates: start: 200906
  19. TYLENOL [Concomitant]
     Indication: HEADACHE
     Dosage: AS NEEDED
  20. SUDAFED [Concomitant]
     Indication: SINUS CONGESTION
     Dosage: AS NEEDED
  21. PROPO-N/APAP [Concomitant]
     Dosage: 100-650 TAB
     Dates: start: 20050221
  22. CEPHADYN [Concomitant]
     Dosage: 650-50
  23. ETODOLAC [Concomitant]
     Dates: start: 20060123
  24. NESCON PD [Concomitant]
     Dosage: 25-275 MG
     Dates: start: 20060123
  25. HYDROCO/APAP [Concomitant]
     Dosage: 5-500 MG
     Dates: start: 20060127
  26. VIVELLE-DOT [Concomitant]
     Dosage: 0.1 MG DIS
     Dates: start: 20060220
  27. PHENAZOPYRID PLUS [Concomitant]
     Dates: start: 20060301
  28. LYRICA [Concomitant]
     Dates: start: 20110610
  29. SULFASALAZINE [Concomitant]
  30. GABAPENTIN [Concomitant]
     Dates: start: 201112
  31. CELEBREX [Concomitant]
  32. KOMASIDINE [Concomitant]
     Indication: ULCER
     Dates: start: 20110610
  33. CYMBALTA [Concomitant]
     Dates: start: 201112
  34. TRAMADOL [Concomitant]
     Dates: start: 201203
  35. FLEXERIL [Concomitant]
     Dates: start: 201203
  36. FLUTICASONE [Concomitant]
     Dosage: 500 MCG
     Dates: start: 20111028
  37. PHENAZOPYRID [Concomitant]
     Dates: start: 20120110
  38. CIPROFLOXACIN [Concomitant]
     Dates: start: 20120110

REACTIONS (26)
  - Lower limb fracture [Unknown]
  - Bone density decreased [Unknown]
  - Intestinal haemorrhage [Unknown]
  - Osteoporotic fracture [Unknown]
  - Abdominal adhesions [Unknown]
  - Foot fracture [Unknown]
  - Complex regional pain syndrome [Unknown]
  - Colitis ischaemic [Unknown]
  - Exostosis [Unknown]
  - Mononeuropathy [Unknown]
  - Abdominal pain [Unknown]
  - Osteoporosis [Unknown]
  - Gastric ulcer [Unknown]
  - Abasia [Unknown]
  - Hypokinesia [Unknown]
  - Spinal osteoarthritis [Unknown]
  - Osteoarthritis [Unknown]
  - Quality of life decreased [Unknown]
  - Tarsal tunnel syndrome [Unknown]
  - Gastritis erosive [Unknown]
  - Erosive duodenitis [Unknown]
  - Duodenal ulcer [Unknown]
  - Oesophageal ulcer [Unknown]
  - Hiatus hernia [Unknown]
  - Depression [Unknown]
  - Paraesthesia [Unknown]
